FAERS Safety Report 12240178 (Version 1)
Quarter: 2016Q2

REPORT INFORMATION
  Report Type: Spontaneous
  Country: US (occurrence: US)
  Receive Date: 20160405
  Receipt Date: 20160405
  Transmission Date: 20160815
  Serious: Yes (Life-Threatening, Other)
  Sender: FDA-Public Use
  Company Number: ADR-2014-02282

PATIENT
  Age: 48 Year
  Sex: Female

DRUGS (6)
  1. MARCAINE [Suspect]
     Active Substance: BUPIVACAINE HYDROCHLORIDE
     Route: 037
  2. TRAMADOL. [Suspect]
     Active Substance: TRAMADOL
     Dosage: 50 MG
  3. BACLOFEN. [Suspect]
     Active Substance: BACLOFEN
     Dosage: 230 MCG
     Route: 037
  4. NORCO [Suspect]
     Active Substance: ACETAMINOPHEN\HYDROCODONE BITARTRATE
  5. BACLOFEN. [Suspect]
     Active Substance: BACLOFEN
     Route: 048
  6. PRIALT [Suspect]
     Active Substance: ZICONOTIDE ACETATE
     Dosage: 0.7
     Route: 037

REACTIONS (9)
  - Malaise [Unknown]
  - Cystitis interstitial [Unknown]
  - Pruritus [Unknown]
  - Hypertension [Unknown]
  - Pain [Unknown]
  - Paraesthesia [Unknown]
  - No therapeutic response [Unknown]
  - Abasia [Unknown]
  - Adverse drug reaction [Unknown]
